FAERS Safety Report 21371539 (Version 9)
Quarter: 2023Q4

REPORT INFORMATION
  Report Type: Report from Study
  Country: NL (occurrence: NL)
  Receive Date: 20220923
  Receipt Date: 20231013
  Transmission Date: 20240109
  Serious: Yes (Hospitalization, Other)
  Sender: FDA-Public Use
  Company Number: NL-ABBVIE-4128797

PATIENT
  Age: 75 Year
  Sex: Male

DRUGS (12)
  1. CARBIDOPA\LEVODOPA [Suspect]
     Active Substance: CARBIDOPA\LEVODOPA
     Indication: Parkinson^s disease
     Dosage: MD: 9.0 ML, CD: 3.1 ML/H, ED: 1.0 ML, ?REMAINS AT 16 HOURS
     Route: 050
     Dates: start: 20220829
  2. CARBIDOPA\LEVODOPA [Suspect]
     Active Substance: CARBIDOPA\LEVODOPA
     Dosage: REMAINS AT 16 HOURS
     Route: 050
  3. CARBIDOPA\LEVODOPA [Suspect]
     Active Substance: CARBIDOPA\LEVODOPA
     Dosage: REMAINS AT 16 HOURS
     Route: 050
  4. CARBIDOPA\LEVODOPA [Suspect]
     Active Substance: CARBIDOPA\LEVODOPA
     Dosage: MD: 11.0 ML, CD: 3.4 ML/H, ED: 1.5 ML, ?REMAINS AT 16 HOURS
     Route: 050
  5. POLYETHYLENE GLYCOLS [Concomitant]
     Active Substance: POLYETHYLENE GLYCOLS
     Indication: Bowel movement irregularity
     Dosage: 0.5 DAYS
     Route: 048
  6. BENSERAZIDE HYDROCHLORIDE\LEVODOPA [Concomitant]
     Active Substance: BENSERAZIDE HYDROCHLORIDE\LEVODOPA
     Indication: Parkinson^s disease
     Dosage: NIGHT MEDICATION
     Route: 048
  7. BENSERAZIDE HYDROCHLORIDE\LEVODOPA [Concomitant]
     Active Substance: BENSERAZIDE HYDROCHLORIDE\LEVODOPA
     Indication: Parkinson^s disease
     Dosage: NIGHT MEDICATION
     Route: 048
  8. BENSERAZIDE HYDROCHLORIDE\LEVODOPA [Concomitant]
     Active Substance: BENSERAZIDE HYDROCHLORIDE\LEVODOPA
     Indication: Parkinson^s disease
     Dosage: NIGHT MEDICATION
     Route: 048
  9. BENSERAZIDE HYDROCHLORIDE\LEVODOPA [Concomitant]
     Active Substance: BENSERAZIDE HYDROCHLORIDE\LEVODOPA
     Indication: Parkinson^s disease
     Dosage: NIGHT MEDICATION
     Route: 048
  10. Antagel [Concomitant]
     Indication: Product used for unknown indication
     Dosage: FREQUENCY TEXT: 1 HOUR AFTER EATING?ONGOING
  11. FUSIDIN [Concomitant]
     Indication: Stoma site erythema
  12. DOMPERIDONE [Concomitant]
     Active Substance: DOMPERIDONE
     Indication: Product used for unknown indication

REACTIONS (45)
  - Gastrointestinal disorder [Recovered/Resolved]
  - Peritonitis [Unknown]
  - Hiccups [Not Recovered/Not Resolved]
  - Increased appetite [Not Recovered/Not Resolved]
  - Device dislocation [Recovered/Resolved]
  - Device placement issue [Unknown]
  - Inflammatory marker increased [Unknown]
  - Bowel movement irregularity [Recovered/Resolved]
  - Decubitus ulcer [Not Recovered/Not Resolved]
  - Psychiatric symptom [Not Recovered/Not Resolved]
  - Nocturia [Not Recovered/Not Resolved]
  - Abdominal pain [Unknown]
  - Muscle rigidity [Not Recovered/Not Resolved]
  - Stoma site discharge [Recovering/Resolving]
  - Tremor [Not Recovered/Not Resolved]
  - Dizziness postural [Not Recovered/Not Resolved]
  - Ageusia [Not Recovered/Not Resolved]
  - Cognitive disorder [Not Recovered/Not Resolved]
  - Bradykinesia [Not Recovered/Not Resolved]
  - Memory impairment [Recovering/Resolving]
  - Hallucination [Not Recovered/Not Resolved]
  - Gait disturbance [Not Recovered/Not Resolved]
  - Decreased appetite [Recovered/Resolved]
  - Reduced facial expression [Not Recovered/Not Resolved]
  - Depressed mood [Not Recovered/Not Resolved]
  - Freezing phenomenon [Not Recovered/Not Resolved]
  - Abdominal distension [Not Recovered/Not Resolved]
  - Asthenia [Not Recovered/Not Resolved]
  - Nausea [Recovered/Resolved]
  - Stoma site erythema [Not Recovered/Not Resolved]
  - On and off phenomenon [Not Recovered/Not Resolved]
  - Dyskinesia [Not Recovered/Not Resolved]
  - Anxiety [Not Recovered/Not Resolved]
  - Speech disorder [Not Recovered/Not Resolved]
  - Pneumoperitoneum [Unknown]
  - Polyuria [Unknown]
  - Incontinence [Not Recovered/Not Resolved]
  - Abdominal discomfort [Unknown]
  - Unevaluable event [Recovering/Resolving]
  - Mobility decreased [Not Recovered/Not Resolved]
  - Vomiting [Recovered/Resolved]
  - Underdose [Not Recovered/Not Resolved]
  - Fall [Unknown]
  - Mood swings [Not Recovered/Not Resolved]
  - Bone contusion [Recovering/Resolving]

NARRATIVE: CASE EVENT DATE: 20220101
